FAERS Safety Report 24978386 (Version 1)
Quarter: 2025Q1

REPORT INFORMATION
  Report Type: Spontaneous
  Country: FR (occurrence: FR)
  Receive Date: 20250217
  Receipt Date: 20250217
  Transmission Date: 20250409
  Serious: Yes (Death, Other)
  Sender: AMGEN
  Company Number: FR-AMGEN-FRASP2025029264

PATIENT

DRUGS (2)
  1. BEVACIZUMAB [Suspect]
     Active Substance: BEVACIZUMAB
     Indication: Non-small cell lung cancer metastatic
     Route: 065
  2. BEVACIZUMAB [Suspect]
     Active Substance: BEVACIZUMAB
     Indication: EGFR gene mutation

REACTIONS (7)
  - Death [Fatal]
  - Gastrointestinal disorder [Unknown]
  - Diarrhoea [Unknown]
  - Non-small cell lung cancer recurrent [Unknown]
  - Nausea [Unknown]
  - Vomiting [Unknown]
  - Adverse event [Unknown]
